FAERS Safety Report 4355271-7 (Version None)
Quarter: 2004Q2

REPORT INFORMATION
  Report Type: 
  Country: None (occurrence: None)
  Receive Date: 20040506
  Receipt Date: 20040419
  Transmission Date: 20050107
  Serious: Yes (Hospitalization)
  Sender: FDA-Public Use
  Company Number: 20040400286

PATIENT
  Age: 29 Year
  Sex: Female

DRUGS (7)
  1. ATRACURIUM BESYLATE [Suspect]
     Indication: HYPOTONIA
     Dosage: 40 MG ONCE
  2. ATRACURIUM BESYLATE [Suspect]
     Indication: HYPOTONIA
     Dosage: 20 MG ONCE
  3. FENTANYL [Concomitant]
  4. PROPOFOL [Concomitant]
  5. NITROUS OXIDE [Concomitant]
  6. OXYGEN [Concomitant]
  7. ISOFLURANCE 1% [Concomitant]

REACTIONS (2)
  - ANAESTHETIC COMPLICATION [None]
  - MUSCLE SPASMS [None]
